FAERS Safety Report 8878795 (Version 1)
Quarter: 2012Q4

REPORT INFORMATION
  Report Type: 
  Country: US (occurrence: US)
  Receive Date: 20121026
  Receipt Date: 20121026
  Transmission Date: 20130627
  Serious: No
  Sender: FDA-Public Use
  Company Number: US-PFIZER INC-2012265889

PATIENT
  Age: 71 Year
  Sex: Male

DRUGS (7)
  1. ATORVASTATIN CALCIUM [Suspect]
     Indication: BLOOD CHOLESTEROL INCREASED
     Dosage: UNK
  2. AMLODIPINE [Concomitant]
     Dosage: UNK
  3. BENAZEPRIL [Concomitant]
     Dosage: UNK
  4. FLOMAX [Concomitant]
     Dosage: UNK
  5. ZOLPIDEM [Concomitant]
     Dosage: UNK
  6. FISH OIL [Concomitant]
     Dosage: UNK
  7. CALCIUM [Concomitant]
     Dosage: UNK

REACTIONS (2)
  - Dizziness [Unknown]
  - Headache [Unknown]
